FAERS Safety Report 18161118 (Version 1)
Quarter: 2020Q3

REPORT INFORMATION
  Report Type: Spontaneous
  Country: CN (occurrence: CN)
  Receive Date: 20200818
  Receipt Date: 20200818
  Transmission Date: 20201103
  Serious: Yes (Other)
  Sender: FDA-Public Use
  Company Number: CN-ROCHE-2660751

PATIENT
  Age: 38 Year
  Sex: Male
  Weight: 65 kg

DRUGS (7)
  1. XELODA [Suspect]
     Active Substance: CAPECITABINE
     Indication: COLON CANCER
     Route: 048
     Dates: start: 20200605, end: 20200618
  2. GLUCOSE [Concomitant]
     Active Substance: DEXTROSE
     Route: 041
     Dates: start: 20200626, end: 20200626
  3. OXALIPLATIN. [Suspect]
     Active Substance: OXALIPLATIN
     Indication: COLON CANCER
     Route: 041
     Dates: start: 20200605, end: 20200605
  4. XELODA [Suspect]
     Active Substance: CAPECITABINE
     Route: 048
     Dates: start: 20200626, end: 20200627
  5. XELODA [Suspect]
     Active Substance: CAPECITABINE
     Dosage: 1.0 G ONCE PER MORNING AND 1.5 G ONCE PER NIGHT
     Route: 048
     Dates: start: 20200628, end: 20200709
  6. OXALIPLATIN. [Suspect]
     Active Substance: OXALIPLATIN
     Route: 041
     Dates: start: 20200626, end: 20200626
  7. GLUCOSE [Concomitant]
     Active Substance: DEXTROSE
     Indication: COLON CANCER
     Route: 041
     Dates: start: 20200605, end: 20200605

REACTIONS (1)
  - Hepatic function abnormal [Recovered/Resolved]

NARRATIVE: CASE EVENT DATE: 20200607
